FAERS Safety Report 6003217-8 (Version None)
Quarter: 2008Q4

REPORT INFORMATION
  Report Type: 
  Country: None (occurrence: None)
  Receive Date: 20081215
  Receipt Date: 20081215
  Transmission Date: 20090506
  Serious: No
  Sender: FDA-Public Use
  Company Number: None

PATIENT
  Sex: Male
  Weight: 108.91 kg

DRUGS (6)
  1. LEVOXYL [Suspect]
     Dosage: 175MCG TABLET 175 MCG QD ORAL
     Route: 048
     Dates: start: 20080827, end: 20081212
  2. ALLEGRA [Concomitant]
  3. ASPIRIN [Concomitant]
  4. FISH OIL CAPSULE [Concomitant]
  5. FLONASE [Concomitant]
  6. RHINOCORT [Concomitant]

REACTIONS (1)
  - APHTHOUS STOMATITIS [None]
